FAERS Safety Report 19275174 (Version 2)
Quarter: 2021Q2

REPORT INFORMATION
  Report Type: Spontaneous
  Country: US (occurrence: US)
  Receive Date: 20210519
  Receipt Date: 20210630
  Transmission Date: 20210717
  Serious: Yes (Other)
  Sender: FDA-Public Use
  Company Number: US-PFIZER INC-2017085915

PATIENT
  Age: 26 Year
  Sex: Male

DRUGS (2)
  1. BENEFIX [Suspect]
     Active Substance: COAGULATION FACTOR IX RECOMBINANT HUMAN\ISOPROPYL ALCOHOL
     Indication: HAEMORRHAGE
     Dosage: DOSE 4000?UNIT QX PER WEEK IN THE 4000 UNITS, AS NEEDED
     Route: 042
  2. AMICAR [Concomitant]
     Active Substance: AMINOCAPROIC ACID
     Dosage: UNK, AS NEEDED

REACTIONS (1)
  - Injury [Unknown]
